FAERS Safety Report 23417092 (Version 1)
Quarter: 2024Q1

REPORT INFORMATION
  Report Type: Report from Study
  Country: NZ (occurrence: NZ)
  Receive Date: 20240118
  Receipt Date: 20240118
  Transmission Date: 20240410
  Serious: Yes (Other)
  Sender: FDA-Public Use
  Company Number: NZ-JNJFOC-20231201706

PATIENT
  Age: 18 Year
  Sex: Male

DRUGS (7)
  1. REMICADE [Suspect]
     Active Substance: INFLIXIMAB
     Indication: Crohn^s disease
     Route: 041
     Dates: start: 20220921
  2. REMICADE [Suspect]
     Active Substance: INFLIXIMAB
     Route: 041
     Dates: start: 20230307
  3. PREDNISONE [Concomitant]
     Active Substance: PREDNISONE
     Indication: Crohn^s disease
     Dosage: TAPERING DOSE ONLY
  4. ACETAMINOPHEN [Concomitant]
     Active Substance: ACETAMINOPHEN
  5. CHOLECALCIFEROL [Concomitant]
     Active Substance: CHOLECALCIFEROL
  6. MESALAMINE [Concomitant]
     Active Substance: MESALAMINE
  7. ZOPICLONE [Concomitant]
     Active Substance: ZOPICLONE

REACTIONS (3)
  - Clostridium difficile colitis [Unknown]
  - Crohn^s disease [Unknown]
  - Gastrointestinal inflammation [Not Recovered/Not Resolved]

NARRATIVE: CASE EVENT DATE: 20230201
